FAERS Safety Report 4296600-2 (Version None)
Quarter: 2004Q1

REPORT INFORMATION
  Report Type: 
  Country: None (occurrence: None)
  Receive Date: 20040217
  Receipt Date: 20040213
  Transmission Date: 20041129
  Serious: Yes (Hospitalization)
  Sender: FDA-Public Use
  Company Number: DE-GLAXOSMITHKLINE-D0043185A

PATIENT

DRUGS (1)
  1. IMIGRAN [Suspect]
     Route: 065

REACTIONS (2)
  - MUSCLE TWITCHING [None]
  - NECK PAIN [None]
